FAERS Safety Report 6344564-X (Version None)
Quarter: 2009Q3

REPORT INFORMATION
  Report Type: 
  Country: None (occurrence: None)
  Receive Date: 20090903
  Receipt Date: 20090820
  Transmission Date: 20100115
  Serious: No
  Sender: FDA-Public Use
  Company Number: M-09-0823

PATIENT
  Age: 52 Year
  Sex: Male

DRUGS (8)
  1. PACERONE [Suspect]
     Indication: ARRHYTHMIA
     Dosage: 200 M, BID, PO
     Route: 048
     Dates: start: 20090814
  2. CLONIDINE [Suspect]
     Dosage: 01. MG, BID, PO
     Route: 048
     Dates: start: 20090814
  3. COREG [Concomitant]
  4. COUMADIN [Concomitant]
  5. DIGOXIN [Concomitant]
  6. LANTUS [Concomitant]
  7. METFORMIN HCL [Concomitant]
  8. LISINOPRIL [Concomitant]

REACTIONS (10)
  - ATRIAL FLUTTER [None]
  - CARDIOVASCULAR DISORDER [None]
  - CELLULITIS [None]
  - DYSPNOEA [None]
  - FEELING HOT [None]
  - HEART RATE INCREASED [None]
  - HYPERHIDROSIS [None]
  - NAUSEA [None]
  - PRESYNCOPE [None]
  - TINNITUS [None]
